FAERS Safety Report 7207024-X (Version None)
Quarter: 2011Q1

REPORT INFORMATION
  Report Type: 
  Country: None (occurrence: None)
  Receive Date: 20110103
  Receipt Date: 20101222
  Transmission Date: 20110831
  Serious: Yes (Other)
  Sender: FDA-Public Use
  Company Number: B0681556A

PATIENT
  Sex: Female

DRUGS (11)
  1. LAMICTAL [Suspect]
     Dosage: 50MG PER DAY
     Route: 048
     Dates: start: 20100804, end: 20100813
  2. LAMICTAL [Suspect]
     Dosage: 100MG PER DAY
     Route: 048
     Dates: start: 20100904, end: 20100917
  3. GABAPENTIN [Concomitant]
     Indication: MUSCULOSKELETAL STIFFNESS
     Dosage: 4MG PER DAY
     Route: 048
     Dates: start: 20100605, end: 20100924
  4. LAMICTAL [Suspect]
     Dosage: 25MG PER DAY
     Route: 048
     Dates: start: 20100619, end: 20100803
  5. LAMICTAL [Suspect]
     Dosage: 75MG PER DAY
     Route: 048
     Dates: start: 20100814, end: 20100903
  6. LAMICTAL [Suspect]
     Dosage: 200MG PER DAY
     Route: 048
     Dates: start: 20100918, end: 20100924
  7. LUPRAC [Concomitant]
     Dosage: 8MG PER DAY
     Route: 048
     Dates: start: 20100605, end: 20100924
  8. LAMICTAL [Suspect]
     Dosage: 50MG PER DAY
     Route: 048
     Dates: start: 20100612, end: 20100618
  9. DEPAKENE [Concomitant]
     Indication: EPILEPSY
     Dosage: 800MG PER DAY
     Route: 048
     Dates: start: 20100605, end: 20100924
  10. LAMICTAL [Suspect]
     Indication: EPILEPSY
     Dosage: 25MG PER DAY
     Route: 048
     Dates: start: 20100605, end: 20100611
  11. YODEL S [Concomitant]
     Indication: CONSTIPATION
     Route: 048
     Dates: start: 20100605, end: 20100924

REACTIONS (5)
  - ASTHENIA [None]
  - EPILEPSY [None]
  - OVERDOSE [None]
  - OESOPHAGEAL DISCOMFORT [None]
  - DIZZINESS [None]
